FAERS Safety Report 5512472-X (Version None)
Quarter: 2007Q4

REPORT INFORMATION
  Report Type: 
  Country: None (occurrence: None)
  Receive Date: 20071112
  Receipt Date: 20070322
  Transmission Date: 20080405
  Serious: No
  Sender: FDA-Public Use
  Company Number: A0644269A

PATIENT
  Age: 61 Year
  Sex: Female

DRUGS (9)
  1. AVANDAMET [Suspect]
     Route: 048
  2. AVANDIA [Suspect]
     Route: 048
     Dates: start: 20061201, end: 20070201
  3. PREMARIN [Concomitant]
  4. ASPIRIN [Concomitant]
  5. THYROID TAB [Concomitant]
  6. UNKNOWN MEDICATION [Concomitant]
  7. NOVOLOG [Concomitant]
  8. MYLANTIN [Concomitant]
  9. SLEEPING PILL [Concomitant]

REACTIONS (5)
  - ABDOMINAL DISTENSION [None]
  - ABDOMINAL PAIN UPPER [None]
  - FATIGUE [None]
  - FLUID RETENTION [None]
  - WEIGHT INCREASED [None]
